FAERS Safety Report 7997117-1 (Version None)
Quarter: 2011Q4

REPORT INFORMATION
  Report Type: 
  Country: None (occurrence: None)
  Receive Date: 20111216
  Receipt Date: 20111207
  Transmission Date: 20120403
  Serious: Yes (Life-Threatening, Other)
  Sender: FDA-Public Use
  Company Number: 2011MA017556

PATIENT
  Age: 74 Year
  Sex: Male

DRUGS (5)
  1. GABAPENTIN [Suspect]
     Indication: SCIATICA
     Dosage: 100 MG;TID;PO
     Route: 048
     Dates: start: 20110720, end: 20110830
  2. ASPIRIN [Concomitant]
  3. METFORMIN HCL [Concomitant]
  4. LOSARTAN POTASSIUM AND HYDROCHLOROTHIAZIDE [Concomitant]
  5. GLICLAZIDE [Concomitant]

REACTIONS (2)
  - SUICIDAL IDEATION [None]
  - BLOOD PRESSURE INCREASED [None]
